FAERS Safety Report 25848819 (Version 1)
Quarter: 2025Q3

REPORT INFORMATION
  Report Type: Report from Study
  Country: US (occurrence: US)
  Receive Date: 20250925
  Receipt Date: 20250925
  Transmission Date: 20251021
  Serious: Yes (Other)
  Sender: MALLINCKRODT
  Company Number: US-MALLINCKRODT-MNK202505836

PATIENT
  Sex: Female

DRUGS (1)
  1. CORTICOTROPIN [Suspect]
     Active Substance: CORTICOTROPIN
     Indication: Iridocyclitis
     Dosage: 40 UNITS
     Dates: start: 20240304

REACTIONS (3)
  - Iritis [Unknown]
  - Condition aggravated [Unknown]
  - Migraine [Unknown]

NARRATIVE: CASE EVENT DATE: 20250101
